FAERS Safety Report 13578831 (Version 1)
Quarter: 2017Q2

REPORT INFORMATION
  Report Type: Spontaneous
  Country: US (occurrence: US)
  Receive Date: 20170524
  Receipt Date: 20170524
  Transmission Date: 20170830
  Serious: No
  Sender: FDA-Public Use
  Company Number: US-JAZZ-2017-US-004314

PATIENT
  Sex: Female

DRUGS (40)
  1. BUSPIRONE HCL [Concomitant]
     Active Substance: BUSPIRONE HYDROCHLORIDE
  2. VISTARIL                           /00058402/ [Concomitant]
     Active Substance: HYDROXYZINE HYDROCHLORIDE
  3. LORAZEPAM. [Concomitant]
     Active Substance: LORAZEPAM
  4. EFFEXOR [Concomitant]
     Active Substance: VENLAFAXINE HYDROCHLORIDE
  5. TRINTELLIX [Concomitant]
     Active Substance: VORTIOXETINE HYDROBROMIDE
  6. LUNESTA [Concomitant]
     Active Substance: ESZOPICLONE
  7. NORTREL                            /00318901/ [Concomitant]
     Active Substance: LEVONORGESTREL
  8. AMBIEN [Concomitant]
     Active Substance: ZOLPIDEM TARTRATE
  9. SEROQUEL [Concomitant]
     Active Substance: QUETIAPINE FUMARATE
  10. ALLEGRA ALLERGY [Concomitant]
     Active Substance: FEXOFENADINE HYDROCHLORIDE
  11. CELEXA [Concomitant]
     Active Substance: CITALOPRAM HYDROBROMIDE
  12. NUVIGIL [Concomitant]
     Active Substance: ARMODAFINIL
  13. OCEAN SALINE NASAL SPRAY [Concomitant]
     Active Substance: SODIUM CHLORIDE
  14. METOPROLOL SUCC CT [Concomitant]
  15. ADDERALL [Concomitant]
     Active Substance: AMPHETAMINE ASPARTATE\AMPHETAMINE SULFATE\DEXTROAMPHETAMINE SACCHARATE\DEXTROAMPHETAMINE SULFATE
  16. XANAX [Concomitant]
     Active Substance: ALPRAZOLAM
  17. YAZ [Concomitant]
     Active Substance: DROSPIRENONE\ETHINYL ESTRADIOL
  18. XYREM [Suspect]
     Active Substance: SODIUM OXYBATE
     Dosage: 4.5G, BID
     Route: 048
     Dates: start: 201606
  19. CELEXA [Concomitant]
     Active Substance: CITALOPRAM HYDROBROMIDE
  20. CLARITIN [Concomitant]
     Active Substance: LORATADINE
  21. ATIVAN [Concomitant]
     Active Substance: LORAZEPAM
  22. ORTHO TRI CYCLEN [Concomitant]
     Active Substance: ETHINYL ESTRADIOL\NORGESTIMATE
  23. DIAZEPAM. [Concomitant]
     Active Substance: DIAZEPAM
  24. HYDROXYZINE HCL [Concomitant]
     Active Substance: HYDROXYZINE HYDROCHLORIDE
  25. PROZAC [Concomitant]
     Active Substance: FLUOXETINE HYDROCHLORIDE
  26. PAXIL [Concomitant]
     Active Substance: PAROXETINE HYDROCHLORIDE
  27. RITALIN [Concomitant]
     Active Substance: METHYLPHENIDATE HYDROCHLORIDE
  28. CLONAZEPAM. [Concomitant]
     Active Substance: CLONAZEPAM
  29. OMEGA 3 FISH OIL                   /01334101/ [Concomitant]
     Active Substance: FISH OIL
  30. XYREM [Suspect]
     Active Substance: SODIUM OXYBATE
     Indication: NARCOLEPSY
     Dosage: 2.25G, BID
     Route: 048
     Dates: start: 201207, end: 2012
  31. XYREM [Suspect]
     Active Substance: SODIUM OXYBATE
     Dosage: DOSE ADJUSTMENT
     Route: 048
     Dates: start: 201208, end: 2016
  32. ABILIFY [Concomitant]
     Active Substance: ARIPIPRAZOLE
  33. OLANZAPINE. [Concomitant]
     Active Substance: OLANZAPINE
  34. OMEPRAZOLE. [Concomitant]
     Active Substance: OMEPRAZOLE
  35. ZOFRAN [Concomitant]
     Active Substance: ONDANSETRON HYDROCHLORIDE
  36. LAMICTAL [Concomitant]
     Active Substance: LAMOTRIGINE
  37. CALCIUM MAGNESIUM                  /00591201/ [Concomitant]
  38. TYLENOL EXTRA STRENGTH [Concomitant]
     Active Substance: ACETAMINOPHEN
  39. ORTHO-CEPT [Concomitant]
     Active Substance: DESOGESTREL\ETHINYL ESTRADIOL
  40. SOMINEX                            /00000402/ [Concomitant]

REACTIONS (1)
  - Withdrawal syndrome [Unknown]
